FAERS Safety Report 13348921 (Version 2)
Quarter: 2017Q3

REPORT INFORMATION
  Report Type: Report from Study
  Country: IN (occurrence: IN)
  Receive Date: 20170320
  Receipt Date: 20170823
  Transmission Date: 20171127
  Serious: Yes (Other)
  Sender: FDA-Public Use
  Company Number: IN-ROCHE-1908038

PATIENT

DRUGS (7)
  1. METHYLPREDNISOLONE. [Suspect]
     Active Substance: METHYLPREDNISOLONE
     Indication: GRANULOMATOSIS WITH POLYANGIITIS
     Route: 042
  2. METHOTREXATE. [Suspect]
     Active Substance: METHOTREXATE
     Indication: GRANULOMATOSIS WITH POLYANGIITIS
     Route: 065
  3. CYCLOPHOSPHAMIDE. [Suspect]
     Active Substance: CYCLOPHOSPHAMIDE
     Indication: GRANULOMATOSIS WITH POLYANGIITIS
     Route: 065
  4. PREDNISOLONE. [Suspect]
     Active Substance: PREDNISOLONE
     Indication: GRANULOMATOSIS WITH POLYANGIITIS
     Route: 065
  5. AZATHIOPRINE. [Suspect]
     Active Substance: AZATHIOPRINE
     Indication: GRANULOMATOSIS WITH POLYANGIITIS
     Route: 065
  6. MYCOPHENOLATE MOFETIL. [Suspect]
     Active Substance: MYCOPHENOLATE MOFETIL
     Indication: GRANULOMATOSIS WITH POLYANGIITIS
     Route: 065
  7. RITUXIMAB. [Suspect]
     Active Substance: RITUXIMAB
     Indication: GRANULOMATOSIS WITH POLYANGIITIS
     Route: 042

REACTIONS (16)
  - Bone marrow toxicity [Unknown]
  - Sinus disorder [Unknown]
  - Dyspnoea [Unknown]
  - Laryngeal stenosis [Unknown]
  - Proteinuria [Unknown]
  - Hypertension [Unknown]
  - Nose deformity [Unknown]
  - Skin ulcer [Unknown]
  - Neuropathy peripheral [Unknown]
  - Osteoporosis [Unknown]
  - Deafness [Unknown]
  - Cataract [Unknown]
  - Osteonecrosis [Unknown]
  - Nasal disorder [Unknown]
  - End stage renal disease [Unknown]
  - Diabetes mellitus [Unknown]
